FAERS Safety Report 7546900-5 (Version None)
Quarter: 2011Q2

REPORT INFORMATION
  Report Type: 
  Country: None (occurrence: None)
  Receive Date: 20110614
  Receipt Date: 20110606
  Transmission Date: 20111010
  Serious: Yes (Hospitalization)
  Sender: FDA-Public Use
  Company Number: JP-MERCK-1106USA00923

PATIENT
  Age: 71 Year
  Sex: Male

DRUGS (6)
  1. ASPIRIN [Concomitant]
     Route: 048
     Dates: start: 20101016
  2. LIPITOR [Concomitant]
     Indication: HYPERCHOLESTEROLAEMIA
     Route: 048
     Dates: start: 20101016
  3. PLAVIX [Concomitant]
     Route: 048
     Dates: start: 20101016
  4. JANUVIA [Suspect]
     Indication: DIABETES MELLITUS
     Route: 048
     Dates: start: 20110305, end: 20110501
  5. AMARYL [Concomitant]
     Indication: DIABETES MELLITUS
     Route: 048
     Dates: start: 20100626
  6. JANUVIA [Suspect]
     Route: 048
     Dates: start: 20110501, end: 20110604

REACTIONS (1)
  - INTESTINAL OBSTRUCTION [None]
